FAERS Safety Report 7269213-8 (Version None)
Quarter: 2011Q1

REPORT INFORMATION
  Report Type: 
  Country: None (occurrence: None)
  Receive Date: 20110124
  Receipt Date: 20110113
  Transmission Date: 20110831
  Serious: Yes (Other)
  Sender: FDA-Public Use
  Company Number: DSA_44487_2010

PATIENT
  Sex: Female

DRUGS (6)
  1. XENAZINE [Suspect]
     Indication: TARDIVE DYSKINESIA
     Dosage: 25 MG TID ORAL, (UNSPECIFIED TAPERING DOSE)
     Route: 048
     Dates: start: 20101101
  2. DEPAKOTE [Concomitant]
  3. UNSPECIFIED NEUROLEPTIC [Concomitant]
  4. CLONAZEPAM [Suspect]
     Indication: IRRITABILITY
     Dosage: 3 MG BID ORAL
     Route: 048
     Dates: start: 20100701
  5. CLONAZEPAM [Suspect]
     Indication: TARDIVE DYSKINESIA
     Dosage: 3 MG BID ORAL
     Route: 048
     Dates: start: 20100701
  6. CLONAZEPAM [Suspect]
     Indication: ANXIETY
     Dosage: 3 MG BID ORAL
     Route: 048
     Dates: start: 20100701

REACTIONS (3)
  - CRYING [None]
  - SUICIDAL IDEATION [None]
  - AGGRESSION [None]
